FAERS Safety Report 4495843-2 (Version None)
Quarter: 2004Q4

REPORT INFORMATION
  Report Type: 
  Country: None (occurrence: None)
  Receive Date: 20041108
  Receipt Date: 20041029
  Transmission Date: 20050328
  Serious: Yes (Other)
  Sender: FDA-Public Use
  Company Number: JP-GLAXOSMITHKLINE-B0350582A

PATIENT
  Age: 56 Year
  Sex: Female

DRUGS (2)
  1. ZANTAC [Suspect]
     Dosage: 150MG PER DAY
     Route: 048
     Dates: start: 20040915, end: 20041013
  2. PREDNISOLONE [Concomitant]
     Indication: BRAIN OEDEMA
     Dosage: 5MG PER DAY
     Route: 048
     Dates: start: 20040915, end: 20041013

REACTIONS (1)
  - INTERSTITIAL LUNG DISEASE [None]
